FAERS Safety Report 22300188 (Version 1)
Quarter: 2023Q2

REPORT INFORMATION
  Report Type: Spontaneous
  Country: US (occurrence: US)
  Receive Date: 20230509
  Receipt Date: 20230509
  Transmission Date: 20230722
  Serious: No
  Sender: FDA-Public Use
  Company Number: US-BRISTOL-MYERS SQUIBB COMPANY-2023-065672

PATIENT
  Age: 83 Year
  Sex: Male
  Weight: 76.66 kg

DRUGS (1)
  1. POMALYST [Suspect]
     Active Substance: POMALIDOMIDE
     Indication: Plasma cell myeloma
     Dosage: FREQ: D 1-21 Q 28 DAYS
     Route: 048
     Dates: start: 20221028

REACTIONS (3)
  - Oedema [Unknown]
  - Pain in extremity [Unknown]
  - Swelling [Unknown]
